FAERS Safety Report 9971792 (Version 1)
Quarter: 2014Q1

REPORT INFORMATION
  Report Type: Spontaneous
  Country: US (occurrence: None)
  Receive Date: 20140127
  Receipt Date: 20140127
  Transmission Date: 20141002
  Serious: Yes (Other)
  Sender: FDA-Public Use
  Company Number: 1242415

PATIENT
  Age: 48 Year
  Sex: Female
  Weight: 86.18 kg

DRUGS (2)
  1. RITUXAN [Suspect]
     Indication: B-CELL LYMPHOMA
     Dosage: PER METER SQUARED (375 MG), INTRAVENOUS (NOT OTHERWISE SPECIFIED)?
     Route: 042
  2. BENADRYL (UNITED STATES) (DIPHENHYDRAMINE HYDROCHLORIDE) [Concomitant]

REACTIONS (6)
  - Paraesthesia [None]
  - Urticaria [None]
  - Generalised oedema [None]
  - Blood pressure increased [None]
  - Pruritus [None]
  - Upper respiratory tract congestion [None]
